FAERS Safety Report 7942311-9 (Version None)
Quarter: 2011Q4

REPORT INFORMATION
  Report Type: 
  Country: None (occurrence: None)
  Receive Date: 20111122
  Receipt Date: 20110722
  Transmission Date: 20120403
  Serious: No
  Sender: FDA-Public Use
  Company Number: PHHY2011US58728

PATIENT
  Age: 37 Year
  Sex: Female
  Weight: 91.6 kg

DRUGS (10)
  1. NECON (ETHINYLSETRADIOL, NORETHISTERONE) [Concomitant]
  2. NAPROXEN (ALEVE) [Concomitant]
  3. LAMICTAL [Concomitant]
  4. COLACE (DOCUSATE SODIUM) [Concomitant]
  5. GILENYA [Suspect]
     Indication: MULTIPLE SCLEROSIS
     Dosage: 0.5 MG, QD, ORAL
     Route: 048
     Dates: start: 20110308
  6. INDERAL LA (PROPANOLOL) HYDROCHLORIDE [Concomitant]
  7. PAXIL [Concomitant]
  8. VICODIN [Concomitant]
  9. VITAMIN D [Concomitant]
  10. LEVOTHYROXINE SODIUM [Concomitant]

REACTIONS (4)
  - ADVERSE EVENT [None]
  - HEADACHE [None]
  - NAUSEA [None]
  - BACK PAIN [None]
